FAERS Safety Report 5032839-6 (Version None)
Quarter: 2006Q2

REPORT INFORMATION
  Report Type: 
  Country: None (occurrence: None)
  Receive Date: 20060622
  Receipt Date: 20050627
  Transmission Date: 20061013
  Serious: Yes (Disabling)
  Sender: FDA-Public Use
  Company Number: US-GLAXOSMITHKLINE-A0564394A

PATIENT
  Age: 28 Year
  Sex: Female
  Weight: 81.8 kg

DRUGS (2)
  1. FLONASE [Suspect]
     Indication: DRUG USE FOR UNKNOWN INDICATION
     Route: 045
     Dates: start: 20040801, end: 20041001
  2. SUDAFED [Concomitant]

REACTIONS (2)
  - ANOSMIA [None]
  - SINUSITIS [None]
